FAERS Safety Report 6552472-4 (Version None)
Quarter: 2010Q1

REPORT INFORMATION
  Report Type: 
  Country: None (occurrence: None)
  Receive Date: 20100126
  Receipt Date: 20100119
  Transmission Date: 20100710
  Serious: No
  Sender: FDA-Public Use
  Company Number: PHHO2009IL16111

PATIENT
  Age: 52 Year
  Sex: Male

DRUGS (1)
  1. AFINITOR [Suspect]
     Indication: LUNG NEOPLASM MALIGNANT
     Dosage: 10 MG, QD
     Route: 048
     Dates: start: 20090201, end: 20091230

REACTIONS (1)
  - ANAEMIA [None]
